FAERS Safety Report 9932714 (Version 2)
Quarter: 2015Q1

REPORT INFORMATION
  Report Type: Spontaneous
  Country: US (occurrence: US)
  Receive Date: 20140228
  Receipt Date: 20150212
  Transmission Date: 20150721
  Serious: No
  Sender: FDA-Public Use
  Company Number: US-GLAXOSMITHKLINE-A1026159A

PATIENT
  Age: 41 Year
  Sex: Male

DRUGS (1)
  1. LAMICTAL [Suspect]
     Active Substance: LAMOTRIGINE
     Indication: BIPOLAR II DISORDER
     Route: 065
     Dates: start: 20121018

REACTIONS (5)
  - Intentional product use issue [Unknown]
  - Treatment noncompliance [Unknown]
  - Drug dose omission [Unknown]
  - Malaise [Unknown]
  - Therapy cessation [Unknown]

NARRATIVE: CASE EVENT DATE: 201305
